FAERS Safety Report 10145714 (Version 2)
Quarter: 2014Q2

REPORT INFORMATION
  Report Type: Report from Study
  Country: US (occurrence: US)
  Receive Date: 20140501
  Receipt Date: 20140501
  Transmission Date: 20141212
  Serious: No
  Sender: FDA-Public Use
  Company Number: PHEH2013US007736

PATIENT
  Sex: Male

DRUGS (9)
  1. TASIGNA [Suspect]
     Indication: CHRONIC MYELOID LEUKAEMIA
     Dosage: 150 MG, EVERY 12 HOURS
     Route: 048
     Dates: start: 20130329
  2. DIPHENHYDRAMINE HCL [Concomitant]
  3. PRILOSEC [Concomitant]
  4. TYLENOL [Concomitant]
  5. ALKA SELTZER                       /00057201/ [Concomitant]
  6. SYMBICORT [Concomitant]
  7. TINACTIN [Concomitant]
  8. ZYRTEC [Concomitant]
  9. ALBUTEROL HFA [Concomitant]

REACTIONS (3)
  - Headache [Unknown]
  - Feeling cold [Unknown]
  - Drug dispensing error [Recovered/Resolved]
